FAERS Safety Report 7753519-X (Version None)
Quarter: 2011Q3

REPORT INFORMATION
  Report Type: 
  Country: None (occurrence: None)
  Receive Date: 20110915
  Receipt Date: 20110908
  Transmission Date: 20111222
  Serious: Yes (Hospitalization)
  Sender: FDA-Public Use
  Company Number: US-AMGEN-USACT2011031634

PATIENT
  Age: 54 Year
  Sex: Female

DRUGS (16)
  1. COMPAZINE [Concomitant]
     Dosage: 10 MG, PRN
     Route: 048
  2. FIBER [Concomitant]
     Dosage: UNK
     Route: 048
  3. GAS X [Concomitant]
     Dosage: UNK UNK, PRN
     Route: 048
  4. DECADRON [Concomitant]
     Dosage: 12 MG, PRN
     Route: 042
  5. PEGFILGRASTIM [Suspect]
     Indication: CHEMOTHERAPY
     Dosage: 6 MG, UNK
     Dates: start: 20110520
  6. MAGNESIUM SULFATE [Concomitant]
     Dosage: 1 G, PRN
     Route: 042
  7. CALCIUM GLUCONATE [Concomitant]
     Dosage: 1 G, PRN
     Route: 042
  8. MILK OF MAGNESIA TAB [Concomitant]
     Dosage: UNK UNK, PRN
     Route: 048
  9. SENOKOT [Concomitant]
     Dosage: UNK UNK, PRN
     Route: 048
  10. PHENERGAN HCL [Concomitant]
     Dosage: 25 MG, PRN
     Route: 048
  11. ALOXI [Concomitant]
     Dosage: 0.25 MG, PRN
     Route: 042
  12. VITAMIN B-12 [Concomitant]
     Dosage: 200 MG, UNK
     Route: 048
  13. CELEBREX [Concomitant]
     Dosage: 200 MG, PRN
     Route: 048
  14. HYDROCODONE [Concomitant]
     Dosage: 5 MG, PRN
     Route: 048
  15. ZOFRAN [Concomitant]
     Dosage: 8 MG, PRN
     Route: 048
  16. MS CONTIN [Concomitant]
     Dosage: 15 MG, PRN
     Route: 048

REACTIONS (1)
  - LARGE INTESTINE PERFORATION [None]
